FAERS Safety Report 5127291-6 (Version None)
Quarter: 2006Q4

REPORT INFORMATION
  Report Type: 
  Country: None (occurrence: None)
  Receive Date: 20061010
  Receipt Date: 20061002
  Transmission Date: 20070319
  Serious: Yes (Other)
  Sender: FDA-Public Use
  Company Number: B0440599A

PATIENT
  Age: 19 Year
  Sex: Female

DRUGS (4)
  1. VENTOLIN [Suspect]
     Dosage: 1.2 MG/HR/INTRAVENOUS
     Route: 042
  2. INSULIN [Concomitant]
  3. DEXTROSE [Concomitant]
  4. DEXAMETHASONE TAB [Concomitant]

REACTIONS (1)
  - DIABETIC KETOACIDOSIS [None]
